FAERS Safety Report 21774235 (Version 6)
Quarter: 2023Q2

REPORT INFORMATION
  Report Type: Report from Study
  Country: GB (occurrence: GB)
  Receive Date: 20221224
  Receipt Date: 20230605
  Transmission Date: 20230722
  Serious: Yes (Death, Hospitalization, Other)
  Sender: FDA-Public Use
  Company Number: GB-CELLTRION INC.-2022GB021430

PATIENT

DRUGS (59)
  1. HERZUMA [Suspect]
     Active Substance: TRASTUZUMAB-PKRB
     Indication: Breast cancer metastatic
     Dosage: 441 MG
     Route: 042
     Dates: start: 20180525
  2. HERCEPTIN [Suspect]
     Active Substance: TRASTUZUMAB
     Indication: Breast cancer metastatic
     Dosage: 520 MILLIGRAM, EVERY 3 WEEKS (CUMULATIVE DOSE TO FIRST REACTION: 29219.047 MG)
     Route: 042
     Dates: start: 20171208
  3. HERCEPTIN [Suspect]
     Active Substance: TRASTUZUMAB
     Dosage: 520 MILLIGRAM, EVERY 3 WEEKS (CUMULATIVE DOSE TO FIRST REACTION: 29219.047 MG)
     Route: 042
     Dates: start: 20171208
  4. HERCEPTIN [Suspect]
     Active Substance: TRASTUZUMAB
     Dosage: 520 MILLIGRAM, EVERY 3 WEEKS (CUMULATIVE DOSE TO FIRST REACTION: 29219.047 MG)
     Route: 042
     Dates: start: 20171208
  5. HERCEPTIN [Suspect]
     Active Substance: TRASTUZUMAB
     Dosage: 520 MILLIGRAM, EVERY 3 WEEKS (CUMULATIVE DOSE TO FIRST REACTION: 29219.047 MG)
     Route: 042
     Dates: start: 20171208
  6. HERCEPTIN [Suspect]
     Active Substance: TRASTUZUMAB
     Dosage: 520 MILLIGRAM, EVERY 3 WEEKS (CUMULATIVE DOSE TO FIRST REACTION: 29219.047 MG)
     Route: 042
     Dates: start: 20171208
  7. HERCEPTIN [Suspect]
     Active Substance: TRASTUZUMAB
     Dosage: 390 MILLIGRAM, EVERY 3 WEEKS (CUMULATIVE DOSE TO FIRST REACTION: 27392.857 MG)
     Route: 042
     Dates: start: 20170216, end: 20170309
  8. HERCEPTIN [Suspect]
     Active Substance: TRASTUZUMAB
     Dosage: 390 MILLIGRAM, EVERY 3 WEEKS (CUMULATIVE DOSE TO FIRST REACTION: 27392.857 MG)
     Route: 042
     Dates: start: 20170216, end: 20170309
  9. HERCEPTIN [Suspect]
     Active Substance: TRASTUZUMAB
     Dosage: 390 MILLIGRAM, EVERY 3 WEEKS (CUMULATIVE DOSE TO FIRST REACTION: 27392.857 MG)
     Route: 042
     Dates: start: 20170216, end: 20170309
  10. HERCEPTIN [Suspect]
     Active Substance: TRASTUZUMAB
     Dosage: 390 MILLIGRAM, EVERY 3 WEEKS (CUMULATIVE DOSE TO FIRST REACTION: 27392.857 MG)
     Route: 042
     Dates: start: 20170216, end: 20170309
  11. HERCEPTIN [Suspect]
     Active Substance: TRASTUZUMAB
     Dosage: 390 MILLIGRAM, EVERY 3 WEEKS (CUMULATIVE DOSE TO FIRST REACTION: 27392.857 MG)
     Route: 042
     Dates: start: 20170216, end: 20170309
  12. HERCEPTIN [Suspect]
     Active Substance: TRASTUZUMAB
     Dosage: 520 MILLIGRAM, EVERY 3 WEEKS (CUMULATIVE DOSE TO FIRST REACTION: 36523.81 MG)
     Route: 042
     Dates: start: 20170216, end: 20170309
  13. HERCEPTIN [Suspect]
     Active Substance: TRASTUZUMAB
     Dosage: 520 MILLIGRAM, EVERY 3 WEEKS (CUMULATIVE DOSE TO FIRST REACTION: 36523.81 MG)
     Route: 042
     Dates: start: 20170216, end: 20170309
  14. HERCEPTIN [Suspect]
     Active Substance: TRASTUZUMAB
     Dosage: 520 MILLIGRAM, EVERY 3 WEEKS (CUMULATIVE DOSE TO FIRST REACTION: 36523.81 MG)
     Route: 042
     Dates: start: 20170216, end: 20170309
  15. HERCEPTIN [Suspect]
     Active Substance: TRASTUZUMAB
     Dosage: 520 MILLIGRAM, EVERY 3 WEEKS (CUMULATIVE DOSE TO FIRST REACTION: 36523.81 MG)
     Route: 042
     Dates: start: 20170216, end: 20170309
  16. HERCEPTIN [Suspect]
     Active Substance: TRASTUZUMAB
     Dosage: 520 MILLIGRAM, EVERY 3 WEEKS (CUMULATIVE DOSE TO FIRST REACTION: 36523.81 MG)
     Route: 042
     Dates: start: 20170216, end: 20170309
  17. HERCEPTIN [Suspect]
     Active Substance: TRASTUZUMAB
     Dosage: 390 MG, EVERY 3 WEEKS (CUMULATIVE DOSE: 26984.285MG)
     Route: 042
     Dates: start: 20170310, end: 20170317
  18. HERCEPTIN [Suspect]
     Active Substance: TRASTUZUMAB
     Dosage: 390 MG, EVERY 3 WEEKS (CUMULATIVE DOSE: 26984.285MG)
     Route: 042
     Dates: start: 20170310, end: 20170317
  19. HERCEPTIN [Suspect]
     Active Substance: TRASTUZUMAB
     Dosage: 390 MG, EVERY 3 WEEKS (CUMULATIVE DOSE: 26984.285MG)
     Route: 042
     Dates: start: 20170310, end: 20170317
  20. HERCEPTIN [Suspect]
     Active Substance: TRASTUZUMAB
     Dosage: 390 MG, EVERY 3 WEEKS (CUMULATIVE DOSE: 26984.285MG)
     Route: 042
     Dates: start: 20170310, end: 20170317
  21. HERCEPTIN [Suspect]
     Active Substance: TRASTUZUMAB
     Dosage: 390 MG, EVERY 3 WEEKS (CUMULATIVE DOSE: 26984.285MG)
     Route: 042
     Dates: start: 20170310, end: 20170317
  22. HERCEPTIN [Suspect]
     Active Substance: TRASTUZUMAB
     Dosage: 420 MG, EVERY 3 WEEKS (CUMULATIVE DOSE: 23600.0MG)
     Route: 042
     Dates: start: 20171208, end: 20180504
  23. HERCEPTIN [Suspect]
     Active Substance: TRASTUZUMAB
     Dosage: 420 MG, EVERY 3 WEEKS (CUMULATIVE DOSE: 23600.0MG)
     Route: 042
     Dates: start: 20171208, end: 20180504
  24. HERCEPTIN [Suspect]
     Active Substance: TRASTUZUMAB
     Dosage: 420 MG, EVERY 3 WEEKS (CUMULATIVE DOSE: 23600.0MG)
     Route: 042
     Dates: start: 20171208, end: 20180504
  25. HERCEPTIN [Suspect]
     Active Substance: TRASTUZUMAB
     Dosage: 420 MG, EVERY 3 WEEKS (CUMULATIVE DOSE: 23600.0MG)
     Route: 042
     Dates: start: 20171208, end: 20180504
  26. HERCEPTIN [Suspect]
     Active Substance: TRASTUZUMAB
     Dosage: 420 MG, EVERY 3 WEEKS (CUMULATIVE DOSE: 23600.0MG)
     Route: 042
     Dates: start: 20171208, end: 20180504
  27. PERJETA [Suspect]
     Active Substance: PERTUZUMAB
     Indication: Breast cancer metastatic
     Dosage: 84 MILLIGRAM, EVERY 3 WEEKS
     Route: 042
     Dates: start: 20170216, end: 20170309
  28. PERJETA [Suspect]
     Active Substance: PERTUZUMAB
     Dosage: 84 MILLIGRAM, EVERY 3 WEEKS
     Route: 042
     Dates: start: 20170216, end: 20170309
  29. PERJETA [Suspect]
     Active Substance: PERTUZUMAB
     Dosage: 420 MILLIGRAM, EVERY WEEKS (CUMULATIVE DOSE TO FIRST REACTION: 29060.0 MG)
     Route: 042
     Dates: start: 20170310
  30. PERJETA [Suspect]
     Active Substance: PERTUZUMAB
     Dosage: 420 MILLIGRAM, EVERY 3 WEEKS (CUMULATIVE DOSE TO FIRST REACTION: 29060.0 MG)
     Route: 042
     Dates: start: 20170310
  31. TAXOTERE [Suspect]
     Active Substance: DOCETAXEL
     Indication: Breast cancer metastatic
     Dosage: 1 DOSE, EVERY 3 WEEKS
     Route: 042
     Dates: start: 20170216, end: 20170602
  32. DENOSUMAB [Concomitant]
     Active Substance: DENOSUMAB
     Dosage: 1 DOSE, EVERY 6 WEEKS
     Route: 058
     Dates: start: 20170714
  33. DEXAMETHASONE [Concomitant]
     Active Substance: DEXAMETHASONE
     Dosage: 8 MG, TAKEN FOR 3 DAYS AFTER EACH CHEMO.
     Route: 048
  34. LOPERAMIDE [Concomitant]
     Active Substance: LOPERAMIDE
     Indication: Constipation
     Dosage: UNK
     Route: 048
     Dates: start: 20170714
  35. METOCLOPRAMIDE [Concomitant]
     Active Substance: METOCLOPRAMIDE
     Dosage: 10 MG
     Route: 048
  36. OMEPRAZOLE [Concomitant]
     Active Substance: OMEPRAZOLE
  37. ONDANSETRON [Concomitant]
     Active Substance: ONDANSETRON
     Dosage: 8 MG
     Route: 048
  38. ACETAMINOPHEN [Concomitant]
     Active Substance: ACETAMINOPHEN
     Dosage: 2 TABLET FOUR TIMES A DAY
     Route: 048
  39. QUININE SULFATE [Concomitant]
     Active Substance: QUININE SULFATE
     Indication: Muscle spasms
     Dosage: 1 DOSE, EVERY 1 DAY
     Route: 048
  40. TRAMADOL [Concomitant]
     Active Substance: TRAMADOL
     Dosage: 200 MG, EVERY 1 DAY
     Route: 048
  41. CALCIUM\VITAMIN D [Concomitant]
     Active Substance: CALCIUM\VITAMIN D
  42. CALCIUM CARBONATE\CHOLECALCIFEROL [Concomitant]
     Active Substance: CALCIUM CARBONATE\CHOLECALCIFEROL
  43. CALCIUM CARBONATE\CHOLECALCIFEROL [Concomitant]
     Active Substance: CALCIUM CARBONATE\CHOLECALCIFEROL
  44. ALFENTANIL [Concomitant]
     Active Substance: ALFENTANIL
  45. CARBOCYSTEINE [Concomitant]
     Active Substance: CARBOCYSTEINE
  46. CYCLIZINE [Concomitant]
     Active Substance: CYCLIZINE
  47. DOCUSATE SODIUM [Concomitant]
     Active Substance: DOCUSATE SODIUM
  48. GLYCERIN [Concomitant]
     Active Substance: GLYCERIN
  49. BUTYLSCOPOLAMINE BROMIDE [Concomitant]
     Active Substance: BUTYLSCOPOLAMINE BROMIDE
  50. MACROGOL COMP [Concomitant]
     Route: 065
  51. MAGNESIUM ASPARTATE [Concomitant]
     Active Substance: MAGNESIUM ASPARTATE
  52. MIDAZOLAM [Concomitant]
     Active Substance: MIDAZOLAM
  53. NALOXEGOL [Concomitant]
     Active Substance: NALOXEGOL
  54. ALBUTEROL [Concomitant]
     Active Substance: ALBUTEROL
  55. SENNAE [Concomitant]
  56. SOLIFENACIN [Concomitant]
     Active Substance: SOLIFENACIN
  57. PIPERACILLIN SODIUM\TAZOBACTAM SODIUM [Concomitant]
     Active Substance: PIPERACILLIN SODIUM\TAZOBACTAM SODIUM
  58. TINZAPARIN [Concomitant]
     Active Substance: TINZAPARIN
  59. FORTISIP COMPACT PROTEIN [Concomitant]

REACTIONS (10)
  - Urinary tract obstruction [Fatal]
  - Gastrointestinal carcinoma [Fatal]
  - Hydronephrosis [Fatal]
  - Post procedural infection [Fatal]
  - Nausea [Fatal]
  - Vomiting [Fatal]
  - Anaemia [Unknown]
  - Fatigue [Unknown]
  - Renal impairment [Unknown]
  - Hyperkalaemia [Unknown]

NARRATIVE: CASE EVENT DATE: 20210302
